FAERS Safety Report 16994394 (Version 1)
Quarter: 2019Q4

REPORT INFORMATION
  Report Type: Spontaneous
  Country: US (occurrence: US)
  Receive Date: 20191105
  Receipt Date: 20191105
  Transmission Date: 20200122
  Serious: Yes (Hospitalization)
  Sender: FDA-Public Use
  Company Number: US-BAYER-2019-195719

PATIENT
  Age: 33 Year
  Sex: Female

DRUGS (1)
  1. SKYLA [Suspect]
     Active Substance: LEVONORGESTREL
     Indication: CONTRACEPTION
     Dosage: 14 MCG/24HR, CONT
     Route: 015
     Dates: start: 20180314, end: 20191001

REACTIONS (6)
  - Weight increased [None]
  - Hair texture abnormal [None]
  - Depression [None]
  - Ovarian cyst [Recovered/Resolved]
  - Alopecia [None]
  - Medical device pain [None]

NARRATIVE: CASE EVENT DATE: 20181018
